FAERS Safety Report 13501894 (Version 17)
Quarter: 2019Q2

REPORT INFORMATION
  Report Type: Report from Study
  Country: CN (occurrence: CN)
  Receive Date: 20170502
  Receipt Date: 20190507
  Transmission Date: 20190711
  Serious: Yes (Hospitalization)
  Sender: FDA-Public Use
  Company Number: CN-ROCHE-1923407

PATIENT
  Age: 65 Year
  Sex: Female
  Weight: 56 kg

DRUGS (85)
  1. DEXAMETHASONE SODIUM PHOSPHATE. [Concomitant]
     Active Substance: DEXAMETHASONE SODIUM PHOSPHATE
     Route: 065
     Dates: start: 20170126, end: 20170412
  2. HEPARIN SODIUM. [Concomitant]
     Active Substance: HEPARIN SODIUM
     Route: 065
     Dates: start: 20170126, end: 20170609
  3. INDOMETACIN [Concomitant]
     Active Substance: INDOMETHACIN
     Indication: PYREXIA
     Route: 065
     Dates: start: 20170314, end: 20170317
  4. METHOXYPHENAMINE [Concomitant]
     Active Substance: METHOXYPHENAMINE
     Indication: PNEUMONIA
     Dosage: COMPOUND METHOXYPHENAMINE CAPSULES
     Route: 065
     Dates: start: 20170406, end: 20170416
  5. DOXOFYLLINE [Concomitant]
     Active Substance: DOXOFYLLINE
     Indication: COUGH
     Route: 065
     Dates: start: 20170418, end: 20170422
  6. QIANG LI PI PA LU [Concomitant]
     Indication: COUGH
     Route: 065
     Dates: start: 20170419, end: 20170419
  7. RANITIDINE HYDROCHLORIDE. [Concomitant]
     Active Substance: RANITIDINE HYDROCHLORIDE
     Route: 065
     Dates: start: 20170509, end: 20170515
  8. MOMETASONE FUROATE. [Concomitant]
     Active Substance: MOMETASONE FUROATE
     Indication: ECZEMA
     Route: 065
     Dates: start: 20170715, end: 20170716
  9. AMLODIPINE BESYLATE. [Concomitant]
     Active Substance: AMLODIPINE BESYLATE
     Indication: HYPERTENSION
     Route: 065
     Dates: start: 20170723, end: 20170807
  10. ROXITHROMYCIN [Concomitant]
     Active Substance: ROXITHROMYCIN
     Route: 065
     Dates: start: 20170730, end: 20170812
  11. ROXITHROMYCIN [Concomitant]
     Active Substance: ROXITHROMYCIN
     Route: 065
     Dates: start: 20170730, end: 20170812
  12. COMPOUND SODIUM CHLORIDE [CALCIUM CHLORIDE;POTASSIUM CHLORIDE;SODIUM C [Concomitant]
     Route: 065
     Dates: start: 20170418, end: 20170422
  13. PERTUZUMAB. [Suspect]
     Active Substance: PERTUZUMAB
     Indication: HER-2 POSITIVE BREAST CANCER
     Dosage: LOADING DOSE AS PER PROTOCOL
     Route: 042
     Dates: start: 20170126
  14. DOCETAXEL. [Suspect]
     Active Substance: DOCETAXEL
     Indication: HER-2 POSITIVE BREAST CANCER
     Dosage: 75 MG/M2 (AS PER PROTOCOL) ONCE IN 3 WEEKS (CYCLES 1-4 PER PROTOCOL).?DATE OF LAST DOSE OF DOCETAXEL
     Route: 042
     Dates: start: 20170126
  15. LATAMOXEF SODIUM [Concomitant]
     Route: 065
     Dates: start: 20170330, end: 20170409
  16. METHOXYPHENAMINE [Concomitant]
     Active Substance: METHOXYPHENAMINE
     Indication: COUGH
     Route: 065
     Dates: start: 20170419, end: 20170419
  17. DIAMMONIUM GLYCYRRHIZINATE [Concomitant]
     Active Substance: HERBALS\DIAMMONIUM GLYCYRRHIZINATE
     Route: 065
     Dates: start: 20170602, end: 20170609
  18. CEFOXITIN SODIUM [Concomitant]
     Active Substance: CEFOXITIN SODIUM
     Route: 065
     Dates: start: 20170610, end: 20170617
  19. PARACETAMOL [Concomitant]
     Active Substance: ACETAMINOPHEN
     Indication: NASOPHARYNGITIS
     Route: 065
     Dates: start: 20180112, end: 20180117
  20. CHLORPHENAMINE MALEATE [Concomitant]
     Active Substance: CHLORPHENIRAMINE MALEATE
     Indication: NASOPHARYNGITIS
     Route: 065
     Dates: start: 20180112, end: 20180117
  21. GATIFLOXACIN. [Concomitant]
     Active Substance: GATIFLOXACIN
     Indication: PHARYNGITIS
     Route: 065
     Dates: start: 20181101, end: 20181104
  22. PERTUZUMAB. [Suspect]
     Active Substance: PERTUZUMAB
     Dosage: MAINTENANCE DOSE.?DATE OF LAST DOSE OF BLINDED PERTUZUMAB MG ON 09/MAR/2017: 420MG
     Route: 042
     Dates: start: 20170216
  23. INDOMETACIN [Concomitant]
     Active Substance: INDOMETHACIN
     Route: 065
     Dates: start: 20170417, end: 20170417
  24. METHOXYPHENAMINE [Concomitant]
     Active Substance: METHOXYPHENAMINE
     Route: 065
     Dates: start: 20180210, end: 20180216
  25. POTASSIUM CHLORIDE. [Concomitant]
     Active Substance: POTASSIUM CHLORIDE
     Route: 065
     Dates: start: 20170612, end: 20170617
  26. LEVOFLOXACIN MESYLATE [Concomitant]
     Active Substance: LEVOFLOXACIN
     Route: 065
     Dates: start: 20170420, end: 20170430
  27. LEVOFLOXACIN MESYLATE [Concomitant]
     Active Substance: LEVOFLOXACIN
     Route: 065
     Dates: start: 20170503, end: 20170515
  28. METHYLPREDNISOLONE SODIUM SUCCINATE. [Concomitant]
     Active Substance: METHYLPREDNISOLONE SODIUM SUCCINATE
     Indication: COUGH
     Route: 065
     Dates: start: 20170509, end: 20170515
  29. METHYLPREDNISOLONE SODIUM SUCCINATE. [Concomitant]
     Active Substance: METHYLPREDNISOLONE SODIUM SUCCINATE
     Route: 065
     Dates: start: 20170610, end: 20170617
  30. ACETYLCYSTEINE. [Concomitant]
     Active Substance: ACETYLCYSTEINE
     Indication: ASTHMA
     Route: 065
     Dates: start: 20170610, end: 20170617
  31. ACETYLCYSTEINE. [Concomitant]
     Active Substance: ACETYLCYSTEINE
     Indication: COUGH
     Route: 065
     Dates: start: 20170617, end: 20170710
  32. SALBUTAMOL SULFATE [Concomitant]
     Active Substance: ALBUTEROL SULFATE
     Indication: COUGH
     Route: 065
     Dates: start: 20170610, end: 20170617
  33. GLYCYRRHIZIN [GLYCYRRHIZA GLABRA] [Concomitant]
     Route: 065
     Dates: start: 20170612, end: 20170617
  34. PULMICORT TURBUHALER [Concomitant]
     Active Substance: BUDESONIDE
     Route: 065
     Dates: start: 20170420, end: 20170422
  35. ROXITHROMYCIN [Concomitant]
     Active Substance: ROXITHROMYCIN
     Route: 065
     Dates: start: 20180112, end: 20180120
  36. PALONOSETRON HYDROCHLORIDE. [Concomitant]
     Active Substance: PALONOSETRON HYDROCHLORIDE
     Indication: PROPHYLAXIS OF NAUSEA AND VOMITING
     Route: 065
     Dates: start: 20170126, end: 20170412
  37. FLUCONAZOLE. [Concomitant]
     Active Substance: FLUCONAZOLE
     Indication: COUGH
     Route: 065
     Dates: start: 20170503, end: 20170515
  38. CHLORPHENAMINE MALEATE [Concomitant]
     Active Substance: CHLORPHENIRAMINE MALEATE
     Route: 065
     Dates: start: 20171013, end: 20171013
  39. GLYCYRRHIZA [Concomitant]
     Active Substance: LICORICE
     Route: 065
     Dates: start: 20170410, end: 20170430
  40. PSEUDOEPHEDRINE HYDROCHLORIDE. [Concomitant]
     Active Substance: PSEUDOEPHEDRINE HYDROCHLORIDE
     Indication: NASOPHARYNGITIS
     Route: 065
     Dates: start: 20180112, end: 20180117
  41. TRASTUZUMAB. [Suspect]
     Active Substance: TRASTUZUMAB
     Indication: HER-2 POSITIVE BREAST CANCER
     Dosage: LOADING DOSE AS PER PROTOCOL.
     Route: 042
     Dates: start: 20170126
  42. CIMETIDINE [Concomitant]
     Active Substance: CIMETIDINE
     Route: 065
     Dates: start: 20170126, end: 20170412
  43. INDOMETACIN [Concomitant]
     Active Substance: INDOMETHACIN
     Route: 065
     Dates: start: 20170419, end: 20170419
  44. METHOXYPHENAMINE [Concomitant]
     Active Substance: METHOXYPHENAMINE
     Route: 065
     Dates: start: 20170812, end: 20170901
  45. CEFRADINE [Concomitant]
     Active Substance: CEPHRADINE
     Route: 065
     Dates: start: 20170410, end: 20170416
  46. FILGRASTIM [Concomitant]
     Active Substance: FILGRASTIM
     Route: 065
     Dates: start: 20170419, end: 20170419
  47. PULMICORT TURBUHALER [Concomitant]
     Active Substance: BUDESONIDE
     Indication: ASTHMA
     Route: 055
     Dates: start: 20170610, end: 20170617
  48. METOCLOPRAMIDE DIHYDROCHLORIDE [Concomitant]
     Indication: VOMITING
     Route: 065
     Dates: start: 20170422, end: 20170425
  49. METHYLPREDNISOLONE SODIUM SUCCINATE. [Concomitant]
     Active Substance: METHYLPREDNISOLONE SODIUM SUCCINATE
     Route: 065
     Dates: start: 20170610, end: 20170617
  50. RANITIDINE HYDROCHLORIDE. [Concomitant]
     Active Substance: RANITIDINE HYDROCHLORIDE
     Route: 065
     Dates: start: 20170610, end: 20170701
  51. AZITHROMYCIN ANHYDROUS. [Concomitant]
     Active Substance: AZITHROMYCIN ANHYDROUS
     Route: 065
     Dates: start: 20170610, end: 20170612
  52. SALBUTAMOL SULFATE [Concomitant]
     Active Substance: ALBUTEROL SULFATE
     Indication: ASTHMA
  53. METOPROLOL TARTRATE. [Concomitant]
     Active Substance: METOPROLOL TARTRATE
     Indication: HYPERTENSION
     Route: 065
     Dates: start: 20170721, end: 20170807
  54. ZOLEDRONIC ACID [Concomitant]
     Active Substance: ZOLEDRONIC ACID
     Route: 065
     Dates: start: 20171012
  55. PEGFILGRASTIM [Concomitant]
     Active Substance: PEGFILGRASTIM
     Route: 065
     Dates: start: 20170218, end: 20170218
  56. PEGFILGRASTIM [Concomitant]
     Active Substance: PEGFILGRASTIM
     Route: 065
     Dates: start: 20170311, end: 20170311
  57. DOXOFYLLINE [Concomitant]
     Active Substance: DOXOFYLLINE
     Indication: ASTHMA
  58. PULMICORT TURBUHALER [Concomitant]
     Active Substance: BUDESONIDE
     Indication: COUGH
     Route: 055
     Dates: start: 20170420, end: 20170422
  59. OMEPRAZOLE SODIUM [Concomitant]
     Active Substance: OMEPRAZOLE SODIUM
     Route: 065
     Dates: start: 20170422, end: 20170425
  60. SODIUM CHLORIDE. [Concomitant]
     Active Substance: SODIUM CHLORIDE
     Dosage: CONCENTRATED
     Route: 065
     Dates: start: 20170422, end: 20170425
  61. METHYLPREDNISOLONE SODIUM SUCCINATE. [Concomitant]
     Active Substance: METHYLPREDNISOLONE SODIUM SUCCINATE
     Route: 065
     Dates: start: 20170617, end: 20170627
  62. IRBESARTAN. [Concomitant]
     Active Substance: IRBESARTAN
     Indication: HYPERTENSION
     Route: 065
     Dates: start: 20170723
  63. PARACETAMOL [Concomitant]
     Active Substance: ACETAMINOPHEN
     Route: 065
     Dates: start: 20170807, end: 20170810
  64. DEXTROMETHORPHAN HYDROBROMIDE. [Concomitant]
     Active Substance: DEXTROMETHORPHAN HYDROBROMIDE
     Route: 065
     Dates: start: 20170807, end: 20170810
  65. DEXTROMETHORPHAN HYDROBROMIDE. [Concomitant]
     Active Substance: DEXTROMETHORPHAN HYDROBROMIDE
     Route: 065
     Dates: start: 20171013, end: 20171013
  66. CHLORPHENAMINE MALEATE [Concomitant]
     Active Substance: CHLORPHENIRAMINE MALEATE
     Route: 065
     Dates: start: 20170807, end: 20170810
  67. DEXTROMETHORPHAN HYDROBROMIDE. [Concomitant]
     Active Substance: DEXTROMETHORPHAN HYDROBROMIDE
     Indication: NASOPHARYNGITIS
     Route: 065
     Dates: start: 20180112, end: 20180117
  68. PROMETHAZINE [Concomitant]
     Active Substance: PROMETHAZINE\PROMETHAZINE HYDROCHLORIDE
     Route: 065
     Dates: start: 20170126, end: 20170412
  69. VITAMIN B6 [Concomitant]
     Active Substance: PYRIDOXINE HYDROCHLORIDE
     Indication: PROPHYLAXIS OF NAUSEA AND VOMITING
     Route: 065
     Dates: start: 20170126, end: 20170412
  70. METHOXYPHENAMINE [Concomitant]
     Active Substance: METHOXYPHENAMINE
     Indication: ASTHMA
     Route: 065
     Dates: start: 20170427, end: 20170427
  71. POTASSIUM CHLORIDE. [Concomitant]
     Active Substance: POTASSIUM CHLORIDE
     Route: 065
     Dates: start: 20170418, end: 20170419
  72. LEVOFLOXACIN MESYLATE [Concomitant]
     Active Substance: LEVOFLOXACIN
     Route: 065
     Dates: start: 20170612, end: 20170617
  73. METHYLPREDNISOLONE SODIUM SUCCINATE. [Concomitant]
     Active Substance: METHYLPREDNISOLONE SODIUM SUCCINATE
     Route: 065
     Dates: start: 20170513, end: 20170515
  74. GLUCOSE [Concomitant]
     Active Substance: DEXTROSE
     Route: 065
     Dates: start: 20170612, end: 20170617
  75. HOUTTUYNIA CORDATA [Concomitant]
     Indication: PHARYNGITIS
     Route: 065
     Dates: start: 20181101, end: 20181103
  76. TRASTUZUMAB. [Suspect]
     Active Substance: TRASTUZUMAB
     Dosage: MAINTENANCE DOSE.?DATE OF LAST DOSE OF TRASTUZUMAB AT 342 MG ON 09/MAR/2017.
     Route: 042
     Dates: start: 20170216
  77. DEXAMETHASONE. [Concomitant]
     Active Substance: DEXAMETHASONE
     Route: 065
     Dates: start: 20170125, end: 20170413
  78. METHOXYPHENAMINE [Concomitant]
     Active Substance: METHOXYPHENAMINE
     Route: 065
     Dates: start: 20170610, end: 20170705
  79. PEGFILGRASTIM [Concomitant]
     Active Substance: PEGFILGRASTIM
     Route: 065
     Dates: start: 20170414, end: 20170414
  80. POTASSIUM CHLORIDE. [Concomitant]
     Active Substance: POTASSIUM CHLORIDE
     Route: 065
     Dates: start: 20170422, end: 20170425
  81. QIANG LI PI PA LU [Concomitant]
     Indication: ASTHMA
  82. SODIUM CHLORIDE. [Concomitant]
     Active Substance: SODIUM CHLORIDE
     Dosage: CONCENTRATED
     Route: 065
     Dates: start: 20170418, end: 20170419
  83. POTASSIUM CHLORIDE. [Concomitant]
     Active Substance: POTASSIUM CHLORIDE
     Route: 065
     Dates: start: 20170612, end: 20170617
  84. DESLORATADINE. [Concomitant]
     Active Substance: DESLORATADINE
     Indication: ECZEMA
     Route: 065
     Dates: start: 20170715, end: 20170715
  85. PSEUDOEPHEDRINE HYDROCHLORIDE. [Concomitant]
     Active Substance: PSEUDOEPHEDRINE HYDROCHLORIDE
     Route: 065
     Dates: start: 20170807, end: 20170810

REACTIONS (1)
  - Pneumonia [Recovered/Resolved]

NARRATIVE: CASE EVENT DATE: 20170310
